FAERS Safety Report 7627647-3 (Version None)
Quarter: 2011Q3

REPORT INFORMATION
  Report Type: 
  Country: None (occurrence: None)
  Receive Date: 20110721
  Receipt Date: 20110714
  Transmission Date: 20111222
  Serious: Yes (Death, Life-Threatening, Other)
  Sender: FDA-Public Use
  Company Number: JP-CELGENEUS-087-50794-11060754

PATIENT
  Sex: Male

DRUGS (51)
  1. AZUNOL [Concomitant]
     Dosage: PROPER DOSE
     Route: 048
     Dates: start: 20110322, end: 20110530
  2. KYTRIL [Concomitant]
     Dosage: 1 MILLIGRAM
     Route: 048
     Dates: start: 20110509, end: 20110515
  3. LEVOFLOXACIN [Concomitant]
     Dosage: 500 MILLIGRAM
     Route: 048
     Dates: start: 20110428, end: 20110513
  4. LOXONIN [Concomitant]
     Route: 061
  5. KYTRIL [Concomitant]
     Dosage: 1 MILLIGRAM
     Route: 048
     Dates: start: 20110317, end: 20110323
  6. FK [Concomitant]
     Dosage: 3.9 GRAM
     Route: 048
     Dates: end: 20110530
  7. ITRACONAZOLE [Concomitant]
     Dosage: 20 MILLILITER
     Route: 048
     Dates: start: 20110428, end: 20110516
  8. CLINDAMYCIN [Concomitant]
     Dosage: 300 MILLIGRAM
     Route: 051
     Dates: start: 20110425, end: 20110428
  9. ACUATIM [Concomitant]
     Dosage: PROPER DOSE
     Route: 061
     Dates: start: 20110527, end: 20110527
  10. PRIMPERAN TAB [Concomitant]
     Dosage: 5 MILLIGRAM
     Route: 048
     Dates: start: 20110326, end: 20110530
  11. LOXONIN [Concomitant]
     Dosage: 60 MILLIGRAM
     Route: 048
     Dates: start: 20110320, end: 20110530
  12. RINDERON-V [Concomitant]
     Dosage: PROPER DOSE
     Route: 061
     Dates: end: 20110530
  13. DORIPENEM MONOHYDRATE [Concomitant]
     Dosage: 3 GRAM
     Route: 051
     Dates: start: 20110517, end: 20110530
  14. FULCALIQ [Concomitant]
     Dosage: 1003 MILLILITER
     Route: 051
  15. VIDAZA [Suspect]
     Indication: MYELODYSPLASTIC SYNDROME
     Dosage: 75 MILLIGRAM/SQ. METER
     Route: 058
     Dates: start: 20110317, end: 20110322
  16. PRIMPERAN TAB [Concomitant]
     Dosage: 10 MILLIGRAM
     Route: 051
     Dates: start: 20110510, end: 20110510
  17. VFEND [Concomitant]
     Dosage: 300 MILLIGRAM
     Route: 048
     Dates: start: 20110512, end: 20110518
  18. LENDORMIN [Concomitant]
     Dosage: .25 MILLIGRAM
     Route: 048
     Dates: start: 20110528, end: 20110528
  19. VITAMEDIN [Concomitant]
     Dosage: 1 DOSAGE FORMS
     Route: 051
     Dates: start: 20110512, end: 20110530
  20. VANCOMYCIN [Concomitant]
     Dosage: 1 GRAM
     Route: 041
     Dates: start: 20110529, end: 20110530
  21. VALTREX [Concomitant]
     Dosage: 500 MILLIGRAM
     Route: 048
     Dates: end: 20110530
  22. JU-KAMA [Concomitant]
     Dosage: 3 DOSAGE FORMS
     Route: 048
     Dates: end: 20110530
  23. HEPAFLUSH [Concomitant]
     Dosage: 10 MILLIGRAM
     Route: 051
  24. AMOXICILLIN [Concomitant]
     Dosage: 750 MILLIGRAM
     Route: 048
     Dates: start: 20110516, end: 20110518
  25. ANHIBA [Concomitant]
     Dosage: 400 MILLIGRAM
     Route: 054
     Dates: start: 20110509, end: 20110530
  26. FUNGUARD [Concomitant]
     Dosage: 150 MILLIGRAM
     Route: 051
     Dates: start: 20110516, end: 20110530
  27. MAXIPIME [Concomitant]
     Dosage: 2 GRAM
     Route: 051
     Dates: start: 20110507, end: 20110509
  28. HIRUDOID [Concomitant]
     Dosage: PORPER DOSE
     Route: 061
     Dates: end: 20110530
  29. NEUTROGIN [Concomitant]
     Dosage: 250 MICROGRAM
     Route: 051
     Dates: start: 20110518, end: 20110530
  30. PURSENNID [Concomitant]
     Dosage: 24 MILLIGRAM
     Route: 048
     Dates: start: 20110321, end: 20110530
  31. DOMININ [Concomitant]
     Dosage: 300 MILLIGRAM
     Route: 051
     Dates: start: 20110521, end: 20110530
  32. HYDROCORTONE [Concomitant]
     Dosage: 100 MILLIGRAM
     Route: 051
     Dates: start: 20110510, end: 20110510
  33. WHITE PETROLATUM [Concomitant]
     Route: 061
  34. HUMULIN R [Concomitant]
     Dosage: 18 IU (INTERNATIONAL UNIT)
     Route: 058
     Dates: start: 20110525, end: 20110530
  35. MAXIPIME [Concomitant]
     Dosage: 2 GRAM
     Route: 051
     Dates: start: 20110419, end: 20110424
  36. VIDAZA [Suspect]
     Dosage: 25 MILLIGRAM/SQ. METER
     Route: 058
     Dates: start: 20110509, end: 20110515
  37. LANSOPRAZOLE [Concomitant]
     Dosage: 30 MILLIGRAM
     Route: 048
     Dates: start: 20110317, end: 20110530
  38. MAGNESIUM OXIDE [Concomitant]
     Dosage: 1.5 GRAM
     Route: 048
     Dates: end: 20110511
  39. ACETAMINOPHEN [Concomitant]
     Dosage: 400 MILLIGRAM
     Route: 048
     Dates: start: 20110322, end: 20110530
  40. CIPROFLOXACIN HCL [Concomitant]
     Dosage: 300 MILLIGRAM
     Route: 051
     Dates: start: 20110425, end: 20110427
  41. AMBISOME [Concomitant]
     Dosage: 125-175MG
     Route: 051
     Dates: start: 20110510, end: 20110511
  42. LASIX [Concomitant]
     Dosage: 20 MILLIGRAM
     Route: 051
     Dates: start: 20110524, end: 20110530
  43. MORPHINE HCL ELIXIR [Concomitant]
     Dosage: 10 MILLIGRAM
     Route: 051
     Dates: start: 20110529, end: 20110530
  44. SULFAMETHOXAZOLE [Concomitant]
     Dosage: 1 DOSAGE FORMS
     Route: 048
     Dates: end: 20110530
  45. CHLOR-TRIMETON [Concomitant]
     Dosage: 10 MILLIGRAM
     Route: 051
     Dates: end: 20110530
  46. VFEND [Concomitant]
     Dosage: 600 MILLIGRAM
     Route: 048
     Dates: start: 20110511, end: 20110511
  47. LORAZEPAM [Concomitant]
     Dosage: .5 MILLIGRAM
     Route: 048
     Dates: start: 20110528, end: 20110528
  48. MYOCOR [Concomitant]
     Dosage: PROPER DOSE
     Route: 060
     Dates: start: 20110527, end: 20110527
  49. DROPERIDOL [Concomitant]
     Dosage: 2.5 MILLIGRAM
     Route: 051
  50. ELEMENMIC [Concomitant]
     Dosage: 2 MILLILITER
     Route: 051
     Dates: start: 20110525, end: 20110530
  51. MAXIPIME [Concomitant]
     Dosage: 2 GRAM
     Route: 051
     Dates: start: 20110323, end: 20110325

REACTIONS (8)
  - FEBRILE NEUTROPENIA [None]
  - THROMBOCYTOPENIA [None]
  - PNEUMONIA [None]
  - NAUSEA [None]
  - ANAEMIA [None]
  - CELLULITIS [None]
  - LEUKOPENIA [None]
  - RENAL IMPAIRMENT [None]
